FAERS Safety Report 9778893 (Version 1)
Quarter: 2013Q4

REPORT INFORMATION
  Report Type: Spontaneous
  Country: US (occurrence: US)
  Receive Date: 20131223
  Receipt Date: 20131223
  Transmission Date: 20140711
  Serious: Yes (Other)
  Sender: FDA-Public Use
  Company Number: US-JNJFOC-20131210087

PATIENT
  Age: 60 Year
  Sex: Female
  Weight: 97.52 kg

DRUGS (4)
  1. XARELTO [Suspect]
     Indication: CEREBROVASCULAR ACCIDENT PROPHYLAXIS
     Route: 048
     Dates: start: 2013
  2. XARELTO [Suspect]
     Indication: ATRIAL FIBRILLATION
     Route: 048
     Dates: start: 2013
  3. METOPROLOL [Concomitant]
     Indication: ARRHYTHMIA
     Route: 065
     Dates: start: 2000
  4. FLECAINIDE [Concomitant]
     Indication: ARRHYTHMIA
     Route: 065
     Dates: start: 2000

REACTIONS (3)
  - Haemarthrosis [Not Recovered/Not Resolved]
  - Incorrect dose administered [Recovering/Resolving]
  - Paraesthesia [Recovering/Resolving]
